FAERS Safety Report 14221569 (Version 11)
Quarter: 2018Q4

REPORT INFORMATION
  Report Type: Report from Study
  Country: US (occurrence: US)
  Receive Date: 20171124
  Receipt Date: 20181017
  Transmission Date: 20190204
  Serious: Yes (Other)
  Sender: FDA-Public Use
  Company Number: US-ACTELION-A-NJ2017-157944

PATIENT
  Age: 53 Year
  Sex: Female
  Weight: 80.27 kg

DRUGS (5)
  1. ADCIRCA [Concomitant]
     Active Substance: TADALAFIL
  2. ORENITRAM [Suspect]
     Active Substance: TREPROSTINIL
     Indication: PRODUCT USED FOR UNKNOWN INDICATION
     Dosage: 0.250 MG, BID
     Route: 065
  3. OPSUMIT [Suspect]
     Active Substance: MACITENTAN
     Indication: PULMONARY ARTERIAL HYPERTENSION
     Dosage: 10 MG, QD
     Route: 048
  4. OPSUMIT [Suspect]
     Active Substance: MACITENTAN
     Dosage: 10 MG, QD
     Route: 048
  5. ORENITRAM [Suspect]
     Active Substance: TREPROSTINIL
     Dosage: 0.125 MG, BID
     Route: 065

REACTIONS (22)
  - Dizziness [Unknown]
  - Cough [Unknown]
  - Spinal cord operation [Unknown]
  - Dyspnoea exertional [Unknown]
  - Peripheral swelling [Unknown]
  - Chest discomfort [Unknown]
  - Presyncope [Unknown]
  - Chest pain [Unknown]
  - Myalgia [Unknown]
  - Abdominal distension [Unknown]
  - Chills [Unknown]
  - Malaise [Unknown]
  - Angina pectoris [Unknown]
  - Arthralgia [Unknown]
  - Pulmonary pain [Unknown]
  - Coronary artery disease [Unknown]
  - Nausea [Not Recovered/Not Resolved]
  - Vomiting [Unknown]
  - Pyrexia [Unknown]
  - Knee operation [Unknown]
  - Pain [Unknown]
  - Headache [Not Recovered/Not Resolved]
